FAERS Safety Report 5606693-5 (Version None)
Quarter: 2008Q1

REPORT INFORMATION
  Report Type: 
  Country: None (occurrence: None)
  Receive Date: 20080129
  Receipt Date: 20070220
  Transmission Date: 20080703
  Serious: No
  Sender: FDA-Public Use
  Company Number: A0638738A

PATIENT
  Sex: Male

DRUGS (2)
  1. EPIVIR [Suspect]
     Indication: PROPHYLAXIS
     Dates: start: 20060101
  2. RETROVIR [Suspect]
     Indication: PROPHYLAXIS
     Dates: start: 20060101

REACTIONS (1)
  - MUSCLE CONTRACTIONS INVOLUNTARY [None]
